FAERS Safety Report 8001811 (Version 2)
Quarter: 2016Q1

REPORT INFORMATION
  Report Type: Report from Study
  Country: JP (occurrence: JP)
  Receive Date: 20110622
  Receipt Date: 20160125
  Transmission Date: 20160526
  Serious: Yes (Death)
  Sender: FDA-Public Use
  Company Number: JP-PFIZER INC-2011132827

PATIENT
  Age: 70 Year
  Sex: Female

DRUGS (16)
  1. BUP-4 [Concomitant]
     Active Substance: PROPIVERINE
     Dosage: 10 MG, 1X/DAY
     Route: 048
  2. SOLDEM 3A [Concomitant]
     Active Substance: CARBOHYDRATES\POTASSIUM CHLORIDE\SODIUM CHLORIDE\SODIUM LACTATE
     Indication: FLUID REPLACEMENT
     Dosage: 500 ML, 1X/DAY
     Route: 042
     Dates: start: 20090707, end: 20090715
  3. MUCODYNE [Concomitant]
     Active Substance: CARBOCYSTEINE
     Dosage: 500 MG, 3X/DAY
     Route: 048
  4. PANVITAN [Concomitant]
     Indication: TUBERCULOSIS
     Dosage: 0.67 G, 3X/DAY
     Route: 048
  5. EXCELASE [Concomitant]
     Active Substance: PANCRELIPASE
     Dosage: 1 DF, 3X/DAY
     Route: 048
  6. NABOAL [Concomitant]
     Active Substance: DICLOFENAC
     Dosage: UNK
     Route: 062
  7. CLARITH [Concomitant]
     Active Substance: CLARITHROMYCIN
     Indication: TUBERCULOSIS
     Dosage: 200 MG, 2X/DAY
     Route: 048
  8. BIOFERMIN [Concomitant]
     Active Substance: BACILLUS SUBTILIS\LACTOBACILLUS ACIDOPHILUS\STREPTOCOCCUS FAECAIS
     Dosage: 1 G, 3X/DAY
     Route: 048
  9. GASTER [Concomitant]
     Active Substance: FAMOTIDINE
     Dosage: 20 MG, 1X/DAY
     Route: 048
  10. MYCOBUTIN [Suspect]
     Active Substance: RIFABUTIN
     Dosage: 150 MG, 1X/DAY
     Route: 048
     Dates: start: 20090711, end: 20090721
  11. GRACEVIT [Concomitant]
     Active Substance: SITAFLOXACIN
     Indication: TUBERCULOSIS
     Dosage: 100 MG, 2X/DAY
     Route: 048
  12. MYCOBUTIN [Suspect]
     Active Substance: RIFABUTIN
     Indication: PULMONARY TUBERCULOSIS
     Dosage: 150 MG, 1X/DAY
     Route: 048
     Dates: start: 20090707, end: 20090707
  13. NORMAL SALINE [Concomitant]
     Active Substance: SODIUM CHLORIDE
     Dosage: 100 ML, 2X/DAY
     Route: 042
  14. KOLANTYL [Concomitant]
     Active Substance: DICYCLOMINE HYDROCHLORIDE
     Dosage: 1 G, 3X/DAY
     Route: 048
  15. UNASYN S [Concomitant]
     Active Substance: AMPICILLIN SODIUM\SULBACTAM SODIUM
     Indication: TUBERCULOSIS
     Dosage: 1.5 G, 2X/DAY
     Route: 042
  16. SOLDEM 3A [Concomitant]
     Active Substance: CARBOHYDRATES\POTASSIUM CHLORIDE\SODIUM CHLORIDE\SODIUM LACTATE
     Dosage: 500 ML, 1X/DAY
     Route: 042
     Dates: start: 20090721, end: 20090728

REACTIONS (1)
  - Tuberculosis [Fatal]

NARRATIVE: CASE EVENT DATE: 20090728
